FAERS Safety Report 9658895 (Version 3)
Quarter: 2013Q4

REPORT INFORMATION
  Report Type: Spontaneous
  Country: JP (occurrence: JP)
  Receive Date: 20131030
  Receipt Date: 20131130
  Transmission Date: 20140711
  Serious: Yes (Hospitalization)
  Sender: FDA-Public Use
  Company Number: JP-AMGEN-JPNSP2013076660

PATIENT
  Age: 6 Decade
  Sex: Female

DRUGS (1)
  1. RANMARK [Suspect]
     Indication: METASTASES TO BONE
     Dosage: THIRD TIME AROUND
     Route: 065
     Dates: start: 201308

REACTIONS (2)
  - Pancytopenia [Not Recovered/Not Resolved]
  - C-reactive protein increased [Not Recovered/Not Resolved]
